FAERS Safety Report 7415464-9 (Version None)
Quarter: 2011Q2

REPORT INFORMATION
  Report Type: 
  Country: None (occurrence: None)
  Receive Date: 20110414
  Receipt Date: 20110329
  Transmission Date: 20111010
  Serious: Yes (Other)
  Sender: FDA-Public Use
  Company Number: US-JNJFOC-20110303203

PATIENT
  Sex: Female

DRUGS (3)
  1. LEXAPRO [Concomitant]
     Route: 048
  2. INVEGA [Suspect]
     Indication: PRODUCT USED FOR UNKNOWN INDICATION
     Route: 048
  3. IBUPROFEN [Concomitant]
     Route: 065

REACTIONS (3)
  - WEIGHT INCREASED [None]
  - PROLACTINOMA [None]
  - INJURY [None]
